FAERS Safety Report 13871953 (Version 2)
Quarter: 2017Q4

REPORT INFORMATION
  Report Type: Spontaneous
  Country: CZ (occurrence: CZ)
  Receive Date: 20170816
  Receipt Date: 20171211
  Transmission Date: 20180320
  Serious: Yes (Hospitalization, Disabling, Other)
  Sender: FDA-Public Use
  Company Number: CZ-MERCK KGAA-2024674

PATIENT
  Age: 49 Year
  Sex: Female

DRUGS (17)
  1. MIABENE [Concomitant]
     Active Substance: MIANSERIN HYDROCHLORIDE
  2. TRITTICO [Concomitant]
     Active Substance: TRAZODONE HYDROCHLORIDE
     Dates: start: 201405, end: 201405
  3. PANGROL [Suspect]
     Active Substance: PANCRELIPASE
     Dates: start: 2013
  4. AMITRIPTYLINE HYDROCHLORIDE. [Suspect]
     Active Substance: AMITRIPTYLINE HYDROCHLORIDE
     Dates: start: 20140117
  5. DALACIN [Suspect]
     Active Substance: CLINDAMYCIN
     Dates: start: 2012, end: 2012
  6. VALDOXAN [Suspect]
     Active Substance: AGOMELATINE
     Dates: start: 20131216, end: 20131227
  7. VERAL (VERAPAMIL HYDROCHLORIDE) [Suspect]
     Active Substance: VERAPAMIL HYDROCHLORIDE
  8. AMITRIPTYLINE HYDROCHLORIDE. [Suspect]
     Active Substance: AMITRIPTYLINE HYDROCHLORIDE
  9. PANCREOLAN FORTE [Suspect]
     Active Substance: DIASTASE\LIPASE\PROTEASE
  10. FRISIUM [Suspect]
     Active Substance: CLOBAZAM
  11. ZYMASE (DIASTASE\LIPASE\PROTEASE) [Suspect]
     Active Substance: DIASTASE\LIPASE\PROTEASE
  12. HELICID [Suspect]
     Active Substance: OMEPRAZOLE
     Dates: start: 201311
  13. PANZYNORM [Suspect]
     Active Substance: PANCRELIPASE
  14. AMITRIPTYLINE HYDROCHLORIDE. [Suspect]
     Active Substance: AMITRIPTYLINE HYDROCHLORIDE
     Dates: end: 20140309
  15. NOVOTHYROX [Suspect]
     Active Substance: LEVOTHYROXINE SODIUM
     Indication: THYROID DISORDER
     Dates: start: 200204, end: 2007
  16. PROSULPIN [Suspect]
     Active Substance: SULPIRIDE
     Dates: start: 20131228, end: 20141226
  17. LETROX [Concomitant]
     Active Substance: LEVOTHYROXINE SODIUM

REACTIONS (12)
  - Gastrointestinal disorder [None]
  - Feeding disorder [None]
  - Abdominal pain lower [None]
  - Abdominal pain upper [None]
  - Flatulence [None]
  - Abnormal dreams [None]
  - Medication error [None]
  - Hyperhidrosis [None]
  - Hot flush [None]
  - Lactose intolerance [None]
  - Flushing [None]
  - Abnormal loss of weight [None]

NARRATIVE: CASE EVENT DATE: 2014
